FAERS Safety Report 20405770 (Version 5)
Quarter: 2024Q3

REPORT INFORMATION
  Report Type: Report from Study
  Country: CA (occurrence: CA)
  Receive Date: 20220131
  Receipt Date: 20240905
  Transmission Date: 20241016
  Serious: No
  Sender: ROCHE
  Company Number: CA-ROCHE-2737569

PATIENT
  Age: 49 Year
  Sex: Female

DRUGS (1)
  1. OCREVUS [Suspect]
     Active Substance: OCRELIZUMAB
     Indication: Relapsing-remitting multiple sclerosis
     Dosage: 300 MG AT DAY 0 AND 14, THEN 600 MG EVERY 6 MONTH
     Route: 042
     Dates: start: 20201216

REACTIONS (16)
  - Mobility decreased [Unknown]
  - Therapeutic response decreased [Unknown]
  - Infusion related reaction [Not Recovered/Not Resolved]
  - Fatigue [Not Recovered/Not Resolved]
  - Dry throat [Unknown]
  - Thirst [Unknown]
  - Pyrexia [Unknown]
  - Rhinorrhoea [Unknown]
  - Muscular weakness [Unknown]
  - Fall [Unknown]
  - Balance disorder [Not Recovered/Not Resolved]
  - Gait disturbance [Not Recovered/Not Resolved]
  - Feeling hot [Not Recovered/Not Resolved]
  - Oral herpes [Recovering/Resolving]
  - Animal bite [Recovering/Resolving]
  - Infected bite [Unknown]

NARRATIVE: CASE EVENT DATE: 20201216
